FAERS Safety Report 4436336-8 (Version None)
Quarter: 2004Q3

REPORT INFORMATION
  Report Type: 
  Country: None (occurrence: None)
  Receive Date: 20040728
  Receipt Date: 20030626
  Transmission Date: 20050211
  Serious: Yes (Disabling)
  Sender: FDA-Public Use
  Company Number: 201416

PATIENT
  Age: 54 Year
  Sex: Female

DRUGS (1)
  1. RITUXAN [Suspect]
     Indication: MANTLE CELL LYMPHOMA
     Dates: start: 20030606

REACTIONS (1)
  - HEADACHE [None]
